FAERS Safety Report 8204604-X (Version None)
Quarter: 2012Q1

REPORT INFORMATION
  Report Type: 
  Country: None (occurrence: None)
  Receive Date: 20120313
  Receipt Date: 20120306
  Transmission Date: 20120608
  Serious: Yes (Hospitalization, Other)
  Sender: FDA-Public Use
  Company Number: DE-PFIZER INC-2012016164

PATIENT
  Age: 54 Year
  Sex: Male
  Weight: 170 kg

DRUGS (7)
  1. LYRICA [Suspect]
     Dosage: UNK
     Dates: start: 20111225, end: 20120106
  2. MOVIPREP [Concomitant]
     Indication: CONSTIPATION
     Dosage: UNK
  3. LYRICA [Suspect]
     Dosage: 75 MG - 25MG - 75 MG
     Dates: start: 20111216, end: 20111228
  4. LYRICA [Suspect]
     Indication: PAIN
     Dosage: 75 MG, 2X/DAY
     Route: 048
     Dates: start: 20111103, end: 20111215
  5. NALOXONE [Concomitant]
     Indication: PAIN
     Dosage: 10 / 5 MG THREE TIMES DAILY
     Route: 048
  6. AMITRIPTYLINE HCL [Concomitant]
     Dosage: 10 MG, UNK
  7. NOVALGIN [Concomitant]
     Dosage: 30 - 40 DROPS IN THE MORNING

REACTIONS (13)
  - VISUAL ACUITY REDUCED [None]
  - MUSCLE SPASMS [None]
  - DYSTONIA [None]
  - ANGINA PECTORIS [None]
  - BLOOD GLUCOSE INCREASED [None]
  - PANIC ATTACK [None]
  - PARKINSONISM [None]
  - SLEEP DISORDER [None]
  - FEAR [None]
  - TRANSIENT ISCHAEMIC ATTACK [None]
  - AGITATION [None]
  - RESTLESSNESS [None]
  - COGNITIVE DISORDER [None]
